FAERS Safety Report 5318444-2 (Version None)
Quarter: 2007Q2

REPORT INFORMATION
  Report Type: 
  Country: None (occurrence: None)
  Receive Date: 20070430
  Receipt Date: 20070416
  Transmission Date: 20071010
  Serious: Yes (Disabling)
  Sender: FDA-Public Use
  Company Number: 2007PV000020

PATIENT
  Age: 17 Year
  Sex: Male

DRUGS (4)
  1. DEPOCYTE (CYTARABINE) (15 MG) [Suspect]
     Indication: LEUKAEMIA
     Dosage: 15 MG; 1X; INTH
     Route: 037
  2. CYTARABINE [Concomitant]
  3. PREDNISOLONE [Concomitant]
  4. THIOTEPA [Concomitant]

REACTIONS (2)
  - NEUROLOGICAL SYMPTOM [None]
  - PARAPLEGIA [None]
